FAERS Safety Report 8207023-5 (Version None)
Quarter: 2012Q1

REPORT INFORMATION
  Report Type: 
  Country: None (occurrence: None)
  Receive Date: 20120312
  Receipt Date: 20120213
  Transmission Date: 20120608
  Serious: Yes (Other)
  Sender: FDA-Public Use
  Company Number: GR-AGG-02-2012-0319

PATIENT
  Age: 35 Year
  Sex: Male

DRUGS (4)
  1. PRASUGREL [Concomitant]
  2. ASPIRIN [Concomitant]
  3. AGGRASTAT [Suspect]
     Indication: CORONARY ANGIOPLASTY
     Dosage: INTRAVENOUS (NOT OTHERWISE SPECIFIED)
     Route: 042
  4. RAPILYSIN [Suspect]
     Indication: CORONARY ANGIOPLASTY
     Dosage: INTRAVENOUS (NOT OTHERWISE SPECIFIED)
     Route: 042

REACTIONS (6)
  - THROMBOSIS IN DEVICE [None]
  - ACUTE PULMONARY OEDEMA [None]
  - LEFT VENTRICULAR DYSFUNCTION [None]
  - CORONARY ARTERY OCCLUSION [None]
  - CORONARY ARTERY THROMBOSIS [None]
  - CARDIOGENIC SHOCK [None]
